FAERS Safety Report 9238362 (Version 1)
Quarter: 2013Q2

REPORT INFORMATION
  Report Type: Spontaneous
  Country: US (occurrence: None)
  Receive Date: 20130417
  Receipt Date: 20130417
  Transmission Date: 20140414
  Serious: Yes (Death)
  Sender: FDA-Public Use
  Company Number: None

PATIENT
  Age: 78 Year
  Sex: Male

DRUGS (1)
  1. PHOSPHA 250 NEUTRAL [Suspect]
     Indication: RENAL TRANSPLANT
     Dosage: 2 TABLETS, 3 TIMES/DAY, ORAL
     Route: 048
     Dates: start: 20130124, end: 20130219

REACTIONS (1)
  - Death [None]
